FAERS Safety Report 23155085 (Version 3)
Quarter: 2024Q1

REPORT INFORMATION
  Report Type: Spontaneous
  Country: FR (occurrence: FR)
  Receive Date: 20231107
  Receipt Date: 20240103
  Transmission Date: 20240410
  Serious: Yes (Hospitalization, Other)
  Sender: FDA-Public Use
  Company Number: None

PATIENT
  Age: 38 Year
  Sex: Female
  Weight: 164 kg

DRUGS (8)
  1. CYCLOPHOSPHAMIDE [Suspect]
     Active Substance: CYCLOPHOSPHAMIDE
     Indication: Breast cancer
     Dosage: 800 MG TOTAL (C1 A 11H AVEC 800 MG)
     Route: 042
     Dates: start: 20230509, end: 20230509
  2. CYCLOPHOSPHAMIDE [Suspect]
     Active Substance: CYCLOPHOSPHAMIDE
     Dosage: C1 08/05 800MG; C2 29/05 820MG; C3 21/06 820MG
     Route: 042
     Dates: start: 20230508, end: 20230621
  3. EPIRUBICIN [Suspect]
     Active Substance: EPIRUBICIN
     Dosage: 160 MG TOTAL (C1 A 11H AVEC 160 MG)
     Route: 042
     Dates: start: 20230509, end: 20230509
  4. EPIRUBICIN [Suspect]
     Active Substance: EPIRUBICIN
     Indication: Breast cancer
     Dosage: C1 08/05 160MG; C2 29/05 162MG; C3 21/06 162MG
     Route: 042
     Dates: start: 20230508, end: 20230621
  5. APREPITANT [Concomitant]
     Active Substance: APREPITANT
     Dosage: 125 MG (C1 ? 11H AVEC 125MG)
     Route: 048
     Dates: start: 20230508, end: 20230508
  6. APREPITANT [Concomitant]
     Active Substance: APREPITANT
     Indication: Chemotherapy side effect prophylaxis
     Dosage: 125 MG TOTAL (C1 A 11H AVEC 125 MG)
     Route: 048
     Dates: start: 20230509, end: 20230509
  7. METHYLPREDNISOLONE [Concomitant]
     Active Substance: METHYLPREDNISOLONE
     Indication: Chemotherapy side effect prophylaxis
     Dosage: 60 MG TOTAL (C1 A 11H AVEC 60 MG)
     Route: 042
     Dates: start: 20230509, end: 20230509
  8. METHYLPREDNISOLONE [Concomitant]
     Active Substance: METHYLPREDNISOLONE
     Dosage: 60 MG(C1 ? 11H AVEC 60MG)
     Route: 042
     Dates: start: 20230508, end: 20230508

REACTIONS (2)
  - Paraesthesia [Recovered/Resolved]
  - Hypophosphataemia [Recovered/Resolved]

NARRATIVE: CASE EVENT DATE: 20230508
